FAERS Safety Report 9319536 (Version 1)
Quarter: 2013Q2

REPORT INFORMATION
  Report Type: Spontaneous
  Country: US (occurrence: US)
  Receive Date: 20130530
  Receipt Date: 20130530
  Transmission Date: 20140414
  Serious: No
  Sender: FDA-Public Use
  Company Number: US-GLAXOSMITHKLINE-A0999040A

PATIENT
  Age: 53 Year
  Sex: Female

DRUGS (4)
  1. FLOLAN [Suspect]
     Indication: PRODUCT USED FOR UNKNOWN INDICATION
     Dosage: 45NGKM CONTINUOUS
     Route: 042
     Dates: start: 20040303
  2. ADCIRCA [Concomitant]
  3. LASIX [Concomitant]
  4. TRACLEER [Concomitant]

REACTIONS (9)
  - Pain in jaw [Unknown]
  - Diarrhoea [Unknown]
  - Arthralgia [Unknown]
  - Dizziness [Unknown]
  - Pain in extremity [Unknown]
  - Dyspnoea [Unknown]
  - Nausea [Unknown]
  - Pain [Unknown]
  - Fatigue [Unknown]
